FAERS Safety Report 5284860-0 (Version None)
Quarter: 2007Q1

REPORT INFORMATION
  Report Type: 
  Country: None (occurrence: None)
  Receive Date: 20070328
  Receipt Date: 20070313
  Transmission Date: 20070707
  Serious: Yes (Death)
  Sender: FDA-Public Use
  Company Number: S07-FRA-01271-01

PATIENT
  Age: 53 Year
  Sex: Male

DRUGS (4)
  1. CITALOPRAM HYDROBROMIDE [Suspect]
     Dosage: 10 MG QD PO
     Route: 048
  2. PREVISCAN (FLUINDIONE) [Suspect]
     Indication: CEREBROVASCULAR DISORDER
     Dosage: 10 MG QD PO
     Route: 048
  3. PREVISCAN (FLUINDIONE) [Suspect]
     Indication: CEREBROVASCULAR DISORDER
     Dates: start: 20070104
  4. NEURONTIN [Concomitant]

REACTIONS (7)
  - BRAIN HERNIATION [None]
  - BRONCHIAL OBSTRUCTION [None]
  - HYPERTONIA [None]
  - INTERNATIONAL NORMALISED RATIO INCREASED [None]
  - PROTHROMBIN TIME RATIO INCREASED [None]
  - SUBDURAL HAEMATOMA [None]
  - TACHYPNOEA [None]
